FAERS Safety Report 10586719 (Version 1)
Quarter: 2014Q4

REPORT INFORMATION
  Report Type: Spontaneous
  Country: US (occurrence: None)
  Receive Date: 20141114
  Receipt Date: 20141114
  Transmission Date: 20150529
  Serious: No
  Sender: FDA-Public Use
  Company Number: None

PATIENT
  Age: 36 Year
  Sex: Female
  Weight: 68.95 kg

DRUGS (1)
  1. ACETAMINOPHEN WITH CODEINE 3 [Suspect]
     Active Substance: ACETAMINOPHEN\CODEINE PHOSPHATE
     Indication: PROCEDURAL PAIN
     Dosage: AS NEEDED, TAKEN BY MOUTH
     Route: 048
     Dates: start: 20141103, end: 20141112

REACTIONS (2)
  - Chest pain [None]
  - Abdominal pain [None]

NARRATIVE: CASE EVENT DATE: 20141112
